FAERS Safety Report 8460860-4 (Version None)
Quarter: 2012Q2

REPORT INFORMATION
  Report Type: 
  Country: None (occurrence: None)
  Receive Date: 20120625
  Receipt Date: 20120615
  Transmission Date: 20120825
  Serious: Yes (Hospitalization)
  Sender: FDA-Public Use
  Company Number: JP-AMGEN-JPNSP2012037206

PATIENT
  Age: 80 Year
  Sex: Male
  Weight: 65 kg

DRUGS (14)
  1. VITAMIN B12 [Concomitant]
     Dosage: UNKNOWN
     Route: 048
  2. LYRICA [Concomitant]
     Dosage: UNKNOWN
     Route: 048
     Dates: start: 20120509
  3. LANSOPRAZOLE [Concomitant]
     Route: 048
     Dates: start: 20120414
  4. ACETAMINOPHEN [Concomitant]
     Dosage: UNKNOWN
     Route: 048
     Dates: start: 20120414
  5. LEUPROLIDE ACETATE [Concomitant]
     Indication: PROSTATE CANCER
     Dosage: UNKNOWN
     Route: 058
     Dates: start: 20120414
  6. RANMARK [Suspect]
     Indication: PROSTATE CANCER
     Dosage: 120 MG, Q4WK
     Route: 058
     Dates: start: 20120509, end: 20120606
  7. LOXOPROFEN [Concomitant]
     Dosage: UNKNOWN
     Route: 065
  8. FERROUS CITRATE [Concomitant]
     Dosage: UNKNOWN
     Route: 048
  9. ACETAMINOPHEN [Concomitant]
     Route: 048
     Dates: start: 20120414
  10. RANMARK [Suspect]
     Indication: METASTASES TO BONE
  11. LYRICA [Concomitant]
     Route: 048
     Dates: start: 20120509
  12. CASODEX [Concomitant]
     Dosage: UNKNOWN
     Route: 048
     Dates: start: 20120414
  13. CASODEX [Concomitant]
     Route: 048
     Dates: start: 20120414
  14. LANSOPRAZOLE [Concomitant]
     Dosage: UNKNOWN
     Route: 048
     Dates: start: 20120414

REACTIONS (2)
  - HYPERKALAEMIA [None]
  - HYPOCALCAEMIA [None]
